FAERS Safety Report 20069988 (Version 2)
Quarter: 2022Q1

REPORT INFORMATION
  Report Type: Spontaneous
  Country: CL (occurrence: CL)
  Receive Date: 20211115
  Receipt Date: 20220121
  Transmission Date: 20220423
  Serious: Yes (Other)
  Sender: FDA-Public Use
  Company Number: CL-NOVARTISPH-NVSC2021CL005029

PATIENT
  Sex: Male

DRUGS (2)
  1. GLIVEC [Suspect]
     Active Substance: IMATINIB MESYLATE
     Indication: Gastrointestinal stromal tumour
     Dosage: 400 MG (1 X 400 MG)
     Route: 065
     Dates: start: 201308
  2. GLIVEC [Suspect]
     Active Substance: IMATINIB MESYLATE
     Dosage: 800 MG, QD(2 X 400MG TABLETS)
     Route: 065

REACTIONS (5)
  - Gastrointestinal injury [Unknown]
  - Gastrointestinal stromal tumour [Unknown]
  - Mesenteric neoplasm [Unknown]
  - Malignant neoplasm progression [Unknown]
  - Dysgeusia [Unknown]
